FAERS Safety Report 9630921 (Version 8)
Quarter: 2014Q1

REPORT INFORMATION
  Report Type: Spontaneous
  Country: US (occurrence: US)
  Receive Date: 20131018
  Receipt Date: 20140225
  Transmission Date: 20141002
  Serious: Yes (Other)
  Sender: FDA-Public Use
  Company Number: US-PFIZER INC-2013297320

PATIENT
  Age: 58 Year
  Sex: Female

DRUGS (13)
  1. LIPITOR [Suspect]
     Indication: LOW DENSITY LIPOPROTEIN INCREASED
     Dosage: UNK
     Route: 048
     Dates: start: 20001218
  2. LIPITOR [Suspect]
     Indication: CARDIOVASCULAR EVENT PROPHYLAXIS
     Dosage: 10 MG, DAILY
     Route: 048
     Dates: start: 20011012
  3. LIPITOR [Suspect]
     Dosage: 20 MG, DAILY
     Route: 048
     Dates: start: 200203, end: 20051109
  4. SYNTHROID [Concomitant]
     Dosage: 150 UG, DAILY
     Dates: start: 20051103
  5. CYMBALTA [Concomitant]
     Dosage: 60 MG, DAILY
     Dates: start: 20051103
  6. CALCIUM SUPPLEMENTATION [Concomitant]
     Indication: OSTEOPENIA
     Dosage: UNK, DAILY
     Dates: start: 20051109
  7. CALCIUM MAGNESIUM [Concomitant]
     Dosage: UNK, DAILY
     Dates: start: 20051109
  8. MOBIC [Concomitant]
     Dosage: 7.5 MG, 2X/DAY
     Dates: start: 20051109
  9. MULTIVITAMINS [Concomitant]
     Dosage: UNK, DAILY
     Dates: start: 20051109
  10. NEXIUM [Concomitant]
     Dosage: 40 MG, DAILY
     Dates: start: 20051109
  11. ZYRTEC [Concomitant]
     Dosage: UNK, EVERY 12 HOURS AS NEEDED
     Dates: start: 20051109
  12. ATENOLOL [Concomitant]
     Dosage: 50 MG, DAILY
     Dates: start: 20051109
  13. GLUCOSAMINE [Concomitant]
     Dosage: UNK, DAILY
     Dates: start: 20051109

REACTIONS (1)
  - Type 2 diabetes mellitus [Unknown]
